FAERS Safety Report 23795767 (Version 12)
Quarter: 2024Q4

REPORT INFORMATION
  Report Type: Report from Study
  Country: DE (occurrence: DE)
  Receive Date: 20240429
  Receipt Date: 20241227
  Transmission Date: 20250115
  Serious: Yes (Hospitalization)
  Sender: BAUSCH AND LOMB
  Company Number: DE-SA-2024SA120295

PATIENT
  Age: 76 Year
  Sex: Male
  Weight: 65 kg

DRUGS (78)
  1. DEXAMETHASONE [Suspect]
     Active Substance: DEXAMETHASONE
     Indication: Plasma cell myeloma refractory
     Dosage: 20 MG (D1)
     Route: 065
     Dates: start: 20231204, end: 20231204
  2. DEXAMETHASONE [Suspect]
     Active Substance: DEXAMETHASONE
     Dosage: 20 MG (D15)
     Route: 065
     Dates: start: 20240319, end: 20240319
  3. DEXAMETHASONE [Suspect]
     Active Substance: DEXAMETHASONE
     Dosage: 20 MG (D1)
     Route: 065
     Dates: start: 20240102, end: 20240102
  4. DEXAMETHASONE [Suspect]
     Active Substance: DEXAMETHASONE
     Dosage: 20 MG (D1)
     Route: 065
     Dates: start: 20231106, end: 20231106
  5. DEXAMETHASONE [Suspect]
     Active Substance: DEXAMETHASONE
     Dosage: 40 MG (D15)
     Route: 065
     Dates: start: 20230725, end: 20230725
  6. DEXAMETHASONE [Suspect]
     Active Substance: DEXAMETHASONE
     Dosage: 40 MG, BIW
     Route: 065
     Dates: start: 20230808, end: 20230808
  7. DEXAMETHASONE [Suspect]
     Active Substance: DEXAMETHASONE
     Dosage: 40 MG (D15)
     Route: 065
     Dates: start: 20240124, end: 20240124
  8. DEXAMETHASONE [Suspect]
     Active Substance: DEXAMETHASONE
     Dosage: 20 MG (D1)
     Route: 065
     Dates: start: 20240410, end: 20240410
  9. DEXAMETHASONE [Suspect]
     Active Substance: DEXAMETHASONE
     Dosage: 40 MG, BIW
     Route: 065
     Dates: start: 20230912, end: 20231008
  10. DEXAMETHASONE [Suspect]
     Active Substance: DEXAMETHASONE
     Dosage: 40 MG (D1, D15)
     Route: 065
     Dates: start: 20230328, end: 20230411
  11. DEXAMETHASONE [Suspect]
     Active Substance: DEXAMETHASONE
     Dosage: 40 MG, BIW
     Route: 065
     Dates: start: 20230828, end: 20230910
  12. DEXAMETHASONE [Suspect]
     Active Substance: DEXAMETHASONE
     Dosage: 40 MG (D15)
     Route: 065
     Dates: start: 20231218, end: 20231218
  13. DEXAMETHASONE [Suspect]
     Active Substance: DEXAMETHASONE
     Dosage: 40 MG (D1, D15) BIW
     Route: 065
     Dates: start: 20230807, end: 20230807
  14. DEXAMETHASONE [Suspect]
     Active Substance: DEXAMETHASONE
     Dosage: 40 MG (D1, D15)
     Route: 065
     Dates: start: 20230228, end: 20230314
  15. DEXAMETHASONE [Suspect]
     Active Substance: DEXAMETHASONE
     Dosage: 20 MG (D1)
     Route: 065
     Dates: start: 20240305, end: 20240319
  16. DEXAMETHASONE [Suspect]
     Active Substance: DEXAMETHASONE
     Dosage: 40 MG, BIW
     Route: 065
     Dates: start: 20231009, end: 20231023
  17. DEXAMETHASONE [Suspect]
     Active Substance: DEXAMETHASONE
     Dosage: 40 MG (D15)
     Route: 065
     Dates: start: 20231120, end: 20231120
  18. DEXAMETHASONE [Suspect]
     Active Substance: DEXAMETHASONE
     Dosage: 40 MG (D1 EVERY 28 DAYS)
     Route: 065
     Dates: start: 20230110, end: 20230110
  19. DEXAMETHASONE [Suspect]
     Active Substance: DEXAMETHASONE
     Dosage: 20 MG (D1)
     Route: 065
     Dates: start: 20240206, end: 20240206
  20. DEXAMETHASONE [Suspect]
     Active Substance: DEXAMETHASONE
     Dosage: 40 MG (D1, D15)
     Route: 065
     Dates: start: 20230523, end: 20230606
  21. DEXAMETHASONE [Suspect]
     Active Substance: DEXAMETHASONE
     Dosage: 40 MG (D1, D15)
     Route: 065
     Dates: start: 20230425, end: 20230509
  22. DEXAMETHASONE [Suspect]
     Active Substance: DEXAMETHASONE
     Dosage: 40 MG (D8)
     Route: 065
     Dates: start: 20230118, end: 20230118
  23. DEXAMETHASONE [Suspect]
     Active Substance: DEXAMETHASONE
     Dosage: 40 MG (D15)
     Route: 065
     Dates: start: 20240221, end: 20240221
  24. DEXAMETHASONE [Suspect]
     Active Substance: DEXAMETHASONE
     Dosage: 40 MG (D22)
     Route: 065
     Dates: start: 20230222, end: 20230222
  25. DEXAMETHASONE [Suspect]
     Active Substance: DEXAMETHASONE
     Dosage: 40 MG (D1)
     Route: 065
     Dates: start: 20230706, end: 20230706
  26. DEXAMETHASONE [Suspect]
     Active Substance: DEXAMETHASONE
     Dosage: 20 MG, BIW
     Route: 065
     Dates: start: 20240717, end: 20240815
  27. DEXAMETHASONE [Suspect]
     Active Substance: DEXAMETHASONE
     Dosage: 20 MG, BIW
     Route: 065
     Dates: start: 20240911
  28. POMALIDOMIDE [Suspect]
     Active Substance: POMALIDOMIDE
     Indication: Plasma cell myeloma refractory
     Dosage: 4 MG, QD
     Route: 065
     Dates: start: 20240102, end: 20240130
  29. POMALIDOMIDE [Suspect]
     Active Substance: POMALIDOMIDE
     Dosage: 4 MG (D1-D21)
     Route: 065
     Dates: start: 20230523, end: 20230612
  30. POMALIDOMIDE [Suspect]
     Active Substance: POMALIDOMIDE
     Dosage: 4 MG (D1-D21)
     Route: 065
     Dates: start: 20231009, end: 20231029
  31. POMALIDOMIDE [Suspect]
     Active Substance: POMALIDOMIDE
     Dosage: 4 MG (D1-D7)
     Route: 065
     Dates: start: 20230110, end: 20230116
  32. POMALIDOMIDE [Suspect]
     Active Substance: POMALIDOMIDE
     Dosage: 4 MG (D1, D2, D3, D15)
     Route: 065
     Dates: start: 20230328, end: 20230411
  33. POMALIDOMIDE [Suspect]
     Active Substance: POMALIDOMIDE
     Dosage: 4 MG, QD
     Route: 065
     Dates: start: 20240410, end: 20240416
  34. POMALIDOMIDE [Suspect]
     Active Substance: POMALIDOMIDE
     Dosage: 4 MG (D22)
     Route: 065
     Dates: start: 20230222, end: 20230222
  35. POMALIDOMIDE [Suspect]
     Active Substance: POMALIDOMIDE
     Dosage: 4 MG, QD
     Route: 065
     Dates: start: 20240206, end: 20240221
  36. POMALIDOMIDE [Suspect]
     Active Substance: POMALIDOMIDE
     Dosage: 4 MG (D1-D21)
     Route: 065
     Dates: start: 20230425, end: 20230515
  37. POMALIDOMIDE [Suspect]
     Active Substance: POMALIDOMIDE
     Dosage: 4 MG, QD
     Route: 065
     Dates: start: 20240305, end: 20240325
  38. POMALIDOMIDE [Suspect]
     Active Substance: POMALIDOMIDE
     Dosage: 4 MG (D1-D21)
     Route: 065
     Dates: start: 20230828, end: 20230910
  39. POMALIDOMIDE [Suspect]
     Active Substance: POMALIDOMIDE
     Dosage: 4 MG (D1-D21)
     Route: 065
     Dates: start: 20230808, end: 20230821
  40. POMALIDOMIDE [Suspect]
     Active Substance: POMALIDOMIDE
     Dosage: 4 MG (D8 - D14)
     Route: 065
     Dates: start: 20230118, end: 20230124
  41. POMALIDOMIDE [Suspect]
     Active Substance: POMALIDOMIDE
     Dosage: 4 MG, QD
     Route: 065
     Dates: start: 20231204, end: 20231224
  42. POMALIDOMIDE [Suspect]
     Active Substance: POMALIDOMIDE
     Dosage: 4 MG (D15-D21)
     Route: 065
     Dates: start: 20230725, end: 20230731
  43. POMALIDOMIDE [Suspect]
     Active Substance: POMALIDOMIDE
     Dosage: 4 MG (D1-D14)
     Route: 065
     Dates: start: 20230706, end: 20230719
  44. POMALIDOMIDE [Suspect]
     Active Substance: POMALIDOMIDE
     Dosage: 4 MG (D1-D21)
     Route: 065
     Dates: start: 20230912, end: 20231008
  45. POMALIDOMIDE [Suspect]
     Active Substance: POMALIDOMIDE
     Dosage: 4 MG, QD
     Route: 065
     Dates: start: 20231106, end: 20231126
  46. POMALIDOMIDE [Suspect]
     Active Substance: POMALIDOMIDE
     Dosage: 4 MG (D1, D2, D3, D15)
     Route: 065
     Dates: start: 20230228, end: 20230314
  47. POMALIDOMIDE [Suspect]
     Active Substance: POMALIDOMIDE
     Dosage: 4 MG, QD
     Route: 065
     Dates: start: 20240717, end: 20240821
  48. POMALIDOMIDE [Suspect]
     Active Substance: POMALIDOMIDE
     Dosage: 3 MG, QD
     Route: 065
     Dates: start: 20240911
  49. ISATUXIMAB [Suspect]
     Active Substance: ISATUXIMAB
     Indication: Plasma cell myeloma refractory
     Dosage: 650 MG, BIW
     Route: 065
     Dates: start: 20230328, end: 20240411
  50. ISATUXIMAB [Suspect]
     Active Substance: ISATUXIMAB
     Dosage: 650 MG, QW
     Route: 065
     Dates: start: 20230118, end: 20230118
  51. ISATUXIMAB [Suspect]
     Active Substance: ISATUXIMAB
     Dosage: 650 MG, QW
     Route: 065
     Dates: start: 20230228, end: 20230314
  52. ISATUXIMAB [Suspect]
     Active Substance: ISATUXIMAB
     Dosage: 650 MG, BIW
     Route: 065
     Dates: start: 20230706, end: 20230706
  53. ISATUXIMAB [Suspect]
     Active Substance: ISATUXIMAB
     Dosage: 650 MG, QW
     Route: 065
     Dates: start: 20230110, end: 20230110
  54. ISATUXIMAB [Suspect]
     Active Substance: ISATUXIMAB
     Dosage: 650 MG, BIW
     Route: 065
     Dates: start: 20230725, end: 20230725
  55. ISATUXIMAB [Suspect]
     Active Substance: ISATUXIMAB
     Dosage: 650 MG, BIW
     Route: 065
     Dates: start: 20231106, end: 20231120
  56. ISATUXIMAB [Suspect]
     Active Substance: ISATUXIMAB
     Dosage: 650 MG, BIW
     Route: 065
     Dates: start: 20230425, end: 20230509
  57. ISATUXIMAB [Suspect]
     Active Substance: ISATUXIMAB
     Dosage: 650 MG, BIW
     Route: 065
     Dates: start: 20230808, end: 20230808
  58. ISATUXIMAB [Suspect]
     Active Substance: ISATUXIMAB
     Dosage: 650 MG, BIW
     Route: 065
     Dates: start: 20231009, end: 20231023
  59. ISATUXIMAB [Suspect]
     Active Substance: ISATUXIMAB
     Dosage: 650 MG, BIW
     Route: 065
     Dates: start: 20231204, end: 20231218
  60. ISATUXIMAB [Suspect]
     Active Substance: ISATUXIMAB
     Dosage: 650 MG, QW
     Route: 065
     Dates: start: 20230214, end: 20230214
  61. ISATUXIMAB [Suspect]
     Active Substance: ISATUXIMAB
     Dosage: 650 MG, BIW
     Route: 065
     Dates: start: 20230912, end: 20231008
  62. ISATUXIMAB [Suspect]
     Active Substance: ISATUXIMAB
     Dosage: 650 MG, BIW
     Route: 065
     Dates: start: 20240305, end: 20240319
  63. ISATUXIMAB [Suspect]
     Active Substance: ISATUXIMAB
     Dosage: 650 MG, BIW
     Route: 065
     Dates: start: 20240102, end: 20240124
  64. ISATUXIMAB [Suspect]
     Active Substance: ISATUXIMAB
     Dosage: 650 MG, BIW
     Route: 065
     Dates: start: 20240206, end: 20240221
  65. ISATUXIMAB [Suspect]
     Active Substance: ISATUXIMAB
     Dosage: 650 MG, BIW
     Route: 065
     Dates: start: 20240410, end: 20240513
  66. ISATUXIMAB [Suspect]
     Active Substance: ISATUXIMAB
     Dosage: 650 MG, BIW
     Route: 065
     Dates: start: 20230828, end: 20230911
  67. ISATUXIMAB [Suspect]
     Active Substance: ISATUXIMAB
     Dosage: 650 MG, BIW
     Route: 065
     Dates: start: 20230523, end: 20230606
  68. ISATUXIMAB [Suspect]
     Active Substance: ISATUXIMAB
     Dosage: 650 MG, QW
     Route: 065
     Dates: start: 20230222, end: 20230222
  69. ISATUXIMAB [Suspect]
     Active Substance: ISATUXIMAB
     Dosage: 650 MG, BIW
     Route: 065
     Dates: start: 20240717, end: 20240815
  70. ISATUXIMAB [Suspect]
     Active Substance: ISATUXIMAB
     Dosage: 650 MG, BIW
     Route: 065
     Dates: start: 20240911
  71. CLEMASTINE [Concomitant]
     Active Substance: CLEMASTINE
     Indication: Allergy prophylaxis
     Dosage: UNK UNK, QCY
     Dates: start: 20230110
  72. PANTOPRAZOLE [Concomitant]
     Active Substance: PANTOPRAZOLE
     Indication: Prophylaxis
     Dosage: UNKNOWN
     Dates: start: 20230123
  73. ASPIRIN [Concomitant]
     Active Substance: ASPIRIN
     Indication: Aortic valve incompetence
     Dosage: UNKNOWN
     Dates: start: 20190522
  74. SIMVASTATIN [Concomitant]
     Active Substance: SIMVASTATIN
     Indication: Hypercholesterolaemia
     Dosage: UNKNOWN
     Dates: start: 20160316
  75. VITAMIN D3 [Concomitant]
     Active Substance: CHOLECALCIFEROL
     Indication: Peripheral sensory neuropathy
     Dosage: UNKNOWN
     Dates: start: 20200701
  76. VITAMIN D3 [Concomitant]
     Active Substance: CHOLECALCIFEROL
     Indication: Facial paresis
  77. CANDESARTAN [Concomitant]
     Active Substance: CANDESARTAN
     Indication: Hypertension
     Dosage: UNKNOWN
     Dates: start: 20160316
  78. ACETAMINOPHEN [Concomitant]
     Active Substance: ACETAMINOPHEN
     Indication: Prophylaxis
     Dosage: UNK UNK, QCY
     Dates: start: 20230110

REACTIONS (11)
  - Pleural effusion [Not Recovered/Not Resolved]
  - Pneumonia [Recovered/Resolved]
  - Renal failure [Recovered/Resolved]
  - Leukopenia [Recovered/Resolved]
  - Neutropenia [Not Recovered/Not Resolved]
  - Oropharyngeal pain [Recovered/Resolved]
  - Cough [Not Recovered/Not Resolved]
  - Anaemia [Not Recovered/Not Resolved]
  - Nasopharyngitis [Recovered/Resolved]
  - Bronchitis [Recovered/Resolved]
  - Respiratory tract infection [Not Recovered/Not Resolved]

NARRATIVE: CASE EVENT DATE: 20240122
